FAERS Safety Report 4653147-9 (Version None)
Quarter: 2005Q2

REPORT INFORMATION
  Report Type: 
  Country: None (occurrence: None)
  Receive Date: 20050502
  Receipt Date: 20050502
  Transmission Date: 20051028
  Serious: Yes (Hospitalization)
  Sender: FDA-Public Use
  Company Number: None

PATIENT
  Age: 67 Year
  Sex: Male
  Weight: 78.6 kg

DRUGS (11)
  1. WARFARIN     1MG [Suspect]
     Indication: TRANSIENT ISCHAEMIC ATTACK
     Dosage: 3MG   TU/TH/SAT/SUN   ORAL
     Route: 048
  2. WARFARIN         1MG [Suspect]
     Indication: TRANSIENT ISCHAEMIC ATTACK
     Dosage: 4MG    M/W/F     ORAL
     Route: 048
  3. HYDROCORTISONE [Concomitant]
  4. NITROGLYCERIN [Concomitant]
  5. METHOCARBAMOL [Concomitant]
  6. ATORVASTATIN CALCIUM [Concomitant]
  7. LANOXIN [Concomitant]
  8. DILTIAZEM -INWOOD- [Concomitant]
  9. DOXAZOSIN MESYLATE [Concomitant]
  10. FOSINOPRIL [Concomitant]
  11. METRONIDAZOLE [Concomitant]

REACTIONS (6)
  - DIARRHOEA [None]
  - GASTRITIS EROSIVE [None]
  - HAEMATEMESIS [None]
  - HAEMATOCRIT DECREASED [None]
  - MELAENA [None]
  - OESOPHAGITIS [None]
